FAERS Safety Report 8912615 (Version 1)
Quarter: 2012Q4

REPORT INFORMATION
  Report Type: Spontaneous
  Country: US (occurrence: None)
  Receive Date: 20121113
  Receipt Date: 20121113
  Transmission Date: 20130627
  Serious: Yes (Other)
  Sender: FDA-Public Use
  Company Number: TPA2012A08780

PATIENT
  Sex: Female

DRUGS (1)
  1. DEXILANT [Suspect]
     Indication: GERD
     Dosage: 60 mg,  1 in 1 D,  Per Oral
     Route: 048
     Dates: start: 20111130

REACTIONS (2)
  - Blood calcium increased [None]
  - Thyroid disorder [None]
